FAERS Safety Report 19482128 (Version 1)
Quarter: 2021Q3

REPORT INFORMATION
  Report Type: Spontaneous
  Country: US (occurrence: US)
  Receive Date: 20210701
  Receipt Date: 20210701
  Transmission Date: 20211014
  Serious: Yes (Other)
  Sender: FDA-Public Use
  Company Number: US-DRREDDYS-LIT/USA/21/0137182

PATIENT
  Age: 65 Year
  Sex: Male

DRUGS (2)
  1. DAPTOMYCIN FOR INJECTION [Suspect]
     Active Substance: DAPTOMYCIN
     Indication: SEPTIC ARTHRITIS STAPHYLOCOCCAL
  2. CEFTAROLINE [Suspect]
     Active Substance: CEFTAROLINE
     Indication: SEPTIC ARTHRITIS STAPHYLOCOCCAL

REACTIONS (1)
  - Eosinophilic pneumonia acute [Recovering/Resolving]
